FAERS Safety Report 13416341 (Version 1)
Quarter: 2017Q2

REPORT INFORMATION
  Report Type: Spontaneous
  Country: BR (occurrence: BR)
  Receive Date: 20170407
  Receipt Date: 20170407
  Transmission Date: 20170830
  Serious: Yes (Hospitalization, Other)
  Sender: FDA-Public Use
  Company Number: BR-ABBVIE-17P-020-1936862-00

PATIENT
  Sex: Female
  Weight: 45 kg

DRUGS (4)
  1. DEPAKOTE ER [Suspect]
     Active Substance: DIVALPROEX SODIUM
     Route: 050
  2. ASPIRINA [Concomitant]
     Active Substance: ASPIRIN
     Indication: ANTICOAGULANT THERAPY
     Dosage: ROUTE OF ADMINISTRATION: VIA CATHETER
     Route: 050
  3. DEPAKOTE ER [Suspect]
     Active Substance: DIVALPROEX SODIUM
     Indication: MIGRAINE
     Dosage: AFTER LUNCH; ROUTE OF ADMINISTRATION: VIA CATHETER
     Route: 050
  4. PROPAFENONE HYDROCHLORIDE. [Concomitant]
     Active Substance: PROPAFENONE HYDROCHLORIDE
     Indication: ARRHYTHMIA
     Dosage: ROUTE OF ADMINISTRATION: VIA CATHETER
     Route: 050

REACTIONS (4)
  - Incorrect route of drug administration [Unknown]
  - Product physical issue [Not Recovered/Not Resolved]
  - Trismus [Not Recovered/Not Resolved]
  - Cerebrovascular accident [Recovering/Resolving]
